FAERS Safety Report 7001199-3 (Version None)
Quarter: 2010Q3

REPORT INFORMATION
  Report Type: 
  Country: None (occurrence: None)
  Receive Date: 20100920
  Receipt Date: 20100303
  Transmission Date: 20110219
  Serious: No
  Sender: FDA-Public Use
  Company Number: US-ASTRAZENECA-2010SE32151

PATIENT
  Sex: Female

DRUGS (9)
  1. SEROQUEL [Suspect]
     Dosage: 25 MG -100 MG
     Route: 048
     Dates: start: 20030217
  2. ZYPREXA [Concomitant]
     Dates: start: 20030217
  3. RISPERDAL [Concomitant]
     Dosage: 0.25 QAM, 0.5 QHS
     Dates: start: 20030217
  4. XANAX [Concomitant]
     Dosage: 0.5 MG-1.5 MG
     Dates: start: 19990101
  5. WELLBUTRIN SR [Concomitant]
     Dates: start: 19990129
  6. SERZONE [Concomitant]
     Dates: start: 19990101
  7. TRAZODONE HCL [Concomitant]
     Indication: INSOMNIA
     Dosage: 50MG-100MG
     Dates: start: 19990101
  8. PAXIL CR [Concomitant]
     Dosage: 20 MG-50 MG
     Dates: start: 20041214
  9. PLAVIX [Concomitant]
     Dates: start: 20030217

REACTIONS (2)
  - INSOMNIA [None]
  - STOMACH MASS [None]
